FAERS Safety Report 24028655 (Version 1)
Quarter: 2024Q2

REPORT INFORMATION
  Report Type: Spontaneous
  Country: CA (occurrence: CA)
  Receive Date: 20240628
  Receipt Date: 20240628
  Transmission Date: 20240717
  Serious: Yes (Other)
  Sender: FDA-Public Use
  Company Number: CA-PFIZER INC-202400066807

PATIENT

DRUGS (4)
  1. INFLECTRA [Suspect]
     Active Substance: INFLIXIMAB-DYYB
     Indication: Crohn^s disease
     Dosage: 500 MG, Q 2, 6, THEN EVERY 8 WEEKS
     Route: 042
     Dates: start: 2024
  2. INFLECTRA [Suspect]
     Active Substance: INFLIXIMAB-DYYB
     Dosage: 600 MG, Q 2, 6, THEN EVERY 8 WEEKS
     Route: 042
     Dates: start: 20240315, end: 20240315
  3. INFLECTRA [Suspect]
     Active Substance: INFLIXIMAB-DYYB
     Dosage: 600 MG, Q 2, 6, THEN EVERY 8 WEEKS (500MG)
     Route: 042
     Dates: start: 20240424
  4. INFLECTRA [Suspect]
     Active Substance: INFLIXIMAB-DYYB
     Dosage: 500 MG (600MG, Q 0, 2, 6, THEN EVERY 8 WEEKS)
     Route: 042
     Dates: start: 20240619

REACTIONS (8)
  - Anal fissure [Recovering/Resolving]
  - Condition aggravated [Recovering/Resolving]
  - Abscess [Recovered/Resolved]
  - Arthralgia [Recovered/Resolved]
  - Fistula [Recovered/Resolved]
  - Off label use [Unknown]
  - Intentional product use issue [Unknown]
  - Incorrect dose administered [Unknown]

NARRATIVE: CASE EVENT DATE: 20240101
